FAERS Safety Report 5924863-3 (Version None)
Quarter: 2008Q4

REPORT INFORMATION
  Report Type: 
  Country: None (occurrence: None)
  Receive Date: 20081021
  Receipt Date: 20081007
  Transmission Date: 20090506
  Serious: Yes (Hospitalization)
  Sender: FDA-Public Use
  Company Number: US-JNJFOC-20081004249

PATIENT
  Sex: Female
  Weight: 74.84 kg

DRUGS (3)
  1. DURAGESIC-100 [Suspect]
     Indication: BACK PAIN
     Route: 062
  2. AMBIEN [Concomitant]
     Indication: SLEEP DISORDER
  3. FLEXERIL [Concomitant]
     Indication: BACK PAIN
     Route: 048

REACTIONS (6)
  - DRUG INEFFECTIVE [None]
  - HOSPITALISATION [None]
  - JOINT DISLOCATION [None]
  - MUSCLE SPASMS [None]
  - PRODUCT QUALITY ISSUE [None]
  - WRONG TECHNIQUE IN DRUG USAGE PROCESS [None]
